FAERS Safety Report 14838069 (Version 2)
Quarter: 2018Q2

REPORT INFORMATION
  Report Type: Spontaneous
  Country: US (occurrence: US)
  Receive Date: 20180502
  Receipt Date: 20180612
  Transmission Date: 20180711
  Serious: No
  Sender: FDA-Public Use
  Company Number: US-009507513-1805USA000802

PATIENT
  Age: 18 Year
  Sex: Female
  Weight: 89.8 kg

DRUGS (1)
  1. NEXPLANON [Suspect]
     Active Substance: ETONOGESTREL
     Indication: CONTRACEPTION
     Dosage: 1 ROD, EVERY 3 YEARS, LEFT UPPER ARM
     Route: 058
     Dates: start: 20180501, end: 20180501

REACTIONS (4)
  - No adverse event [Unknown]
  - Complication of device insertion [Recovered/Resolved]
  - Device deployment issue [Recovered/Resolved]
  - Product quality issue [Unknown]

NARRATIVE: CASE EVENT DATE: 20180501
